FAERS Safety Report 16377988 (Version 1)
Quarter: 2019Q2

REPORT INFORMATION
  Report Type: Spontaneous
  Country: US (occurrence: US)
  Receive Date: 20190425
  Receipt Date: 20190425
  Transmission Date: 20190711
  Serious: No
  Sender: FDA-Public Use
  Company Number: None

PATIENT
  Age: 49 Year
  Sex: Female

DRUGS (2)
  1. KISQALI [Concomitant]
     Active Substance: RIBOCICLIB
  2. LETROZOLE TAB 2.5MG [Suspect]
     Active Substance: LETROZOLE
     Dates: start: 201803

REACTIONS (2)
  - Treatment noncompliance [None]
  - Product dose omission [None]

NARRATIVE: CASE EVENT DATE: 20190425
